FAERS Safety Report 18254022 (Version 2)
Quarter: 2020Q3

REPORT INFORMATION
  Report Type: Spontaneous
  Country: AU (occurrence: AU)
  Receive Date: 20200910
  Receipt Date: 20200918
  Transmission Date: 20201103
  Serious: Yes (Other)
  Sender: FDA-Public Use
  Company Number: AU-INDIVIOR US-INDV-126222-2020

PATIENT
  Age: 87 Year
  Sex: Male

DRUGS (13)
  1. BUPRENORPHINE. [Suspect]
     Active Substance: BUPRENORPHINE
     Indication: PRODUCT USED FOR UNKNOWN INDICATION
     Dosage: UNK
     Route: 065
  2. OXYCODONE [Suspect]
     Active Substance: OXYCODONE
     Indication: PRODUCT USED FOR UNKNOWN INDICATION
     Dosage: UNK
     Route: 065
  3. RISPERIDONE. [Suspect]
     Active Substance: RISPERIDONE
     Indication: PRODUCT USED FOR UNKNOWN INDICATION
     Dosage: UNK
     Route: 065
  4. SODIUM VALPROATE [Suspect]
     Active Substance: VALPROATE SODIUM
     Indication: PRODUCT USED FOR UNKNOWN INDICATION
     Dosage: UNK
     Route: 065
  5. MIRTAZAPINE. [Suspect]
     Active Substance: MIRTAZAPINE
     Indication: PRODUCT USED FOR UNKNOWN INDICATION
     Dosage: UNK
     Route: 065
  6. ATORVASTATIN [Suspect]
     Active Substance: ATORVASTATIN
     Indication: PRODUCT USED FOR UNKNOWN INDICATION
     Dosage: UNK
     Route: 065
  7. ASPIRIN                            /00002701/ [Suspect]
     Active Substance: ASPIRIN
     Indication: PRODUCT USED FOR UNKNOWN INDICATION
     Dosage: UNK
     Route: 065
  8. PERINDOPRIL [Suspect]
     Active Substance: PERINDOPRIL
     Indication: PRODUCT USED FOR UNKNOWN INDICATION
     Dosage: UNK
     Route: 065
  9. TIOTROPIUM BROMIDE [Suspect]
     Active Substance: TIOTROPIUM BROMIDE
     Indication: PRODUCT USED FOR UNKNOWN INDICATION
     Dosage: UNK
     Route: 065
  10. ALLOPURINOL. [Suspect]
     Active Substance: ALLOPURINOL
     Indication: PRODUCT USED FOR UNKNOWN INDICATION
     Dosage: UNK
     Route: 065
  11. PARACETAMOL [Suspect]
     Active Substance: ACETAMINOPHEN
     Indication: PRODUCT USED FOR UNKNOWN INDICATION
     Dosage: UNK
     Route: 065
  12. SALBUTAMOL [Suspect]
     Active Substance: ALBUTEROL
     Indication: PRODUCT USED FOR UNKNOWN INDICATION
     Dosage: UNK
     Route: 065
  13. THIAMINE HYDROCHLORIDE. [Suspect]
     Active Substance: THIAMINE HYDROCHLORIDE
     Indication: PRODUCT USED FOR UNKNOWN INDICATION
     Dosage: UNK
     Route: 065

REACTIONS (32)
  - Sepsis [Unknown]
  - Cachexia [Unknown]
  - Communication disorder [Unknown]
  - Mastication disorder [Unknown]
  - Feeding disorder [Unknown]
  - Mobility decreased [Unknown]
  - Decreased gait velocity [Unknown]
  - Muscle rigidity [Unknown]
  - Rib fracture [Unknown]
  - Seizure [Unknown]
  - Dystonia [Unknown]
  - Sarcopenia [Unknown]
  - General physical health deterioration [Unknown]
  - Dysphagia [Unknown]
  - Fall [Recovered/Resolved]
  - Aptyalism [Unknown]
  - Balance disorder [Unknown]
  - Cognitive disorder [Unknown]
  - Condition aggravated [Unknown]
  - Weight decreased [Unknown]
  - Joint injury [Unknown]
  - Extrapyramidal disorder [Unknown]
  - Muscular weakness [Unknown]
  - Product prescribing issue [Unknown]
  - Sedation [Unknown]
  - Delirium [Unknown]
  - Malnutrition [Unknown]
  - Tardive dyskinesia [Unknown]
  - Dementia with Lewy bodies [Unknown]
  - Urinary tract infection [Unknown]
  - Depressed level of consciousness [Unknown]
  - Asthenia [Unknown]
